FAERS Safety Report 20472958 (Version 34)
Quarter: 2024Q3

REPORT INFORMATION
  Report Type: Spontaneous
  Country: GB (occurrence: GB)
  Receive Date: 20220215
  Receipt Date: 20240928
  Transmission Date: 20241017
  Serious: Yes (Death, Hospitalization)
  Sender: ROCHE
  Company Number: GB-MYLANLABS-2019M1117808

PATIENT
  Age: 59 Year
  Sex: Male
  Weight: 62.0 kg

DRUGS (253)
  1. TRASTUZUMAB [Suspect]
     Active Substance: TRASTUZUMAB
     Indication: Breast cancer metastatic
     Dosage: 609 MG, Q3W (1799.20 MG)
     Route: 042
     Dates: start: 20150930
  2. TRASTUZUMAB [Suspect]
     Active Substance: TRASTUZUMAB
     Route: 042
     Dates: start: 20150930
  3. TRASTUZUMAB [Suspect]
     Active Substance: TRASTUZUMAB
     Dosage: 420 MG, Q3W (CUMULATIVE DOSE: 820.83 MG)
     Route: 042
  4. TRASTUZUMAB [Suspect]
     Active Substance: TRASTUZUMAB
     Dosage: 840 MG, CYCLIC (EVERY 3 WEEKS) 840 MG, Q3W (CUMULATIVE DOSE: 2481.6667 MG)
     Route: 042
  5. TRASTUZUMAB [Suspect]
     Active Substance: TRASTUZUMAB
     Dosage: 609 MG, 2/W
     Route: 042
  6. TRASTUZUMAB [Suspect]
     Active Substance: TRASTUZUMAB
     Route: 042
     Dates: start: 20150930
  7. TRASTUZUMAB [Suspect]
     Active Substance: TRASTUZUMAB
     Route: 042
     Dates: start: 20150930
  8. TRASTUZUMAB [Suspect]
     Active Substance: TRASTUZUMAB
     Route: 042
     Dates: start: 20230930
  9. PERTUZUMAB [Suspect]
     Active Substance: PERTUZUMAB
     Indication: Breast cancer metastatic
     Dosage: (CUMULATIVE DOSE: 820.83 MG)
     Route: 042
     Dates: start: 20151021
  10. PERTUZUMAB [Suspect]
     Active Substance: PERTUZUMAB
     Dosage: 840 MG, Q3W (CUMULATIVE DOSE: 2481.6667 MG)
     Route: 042
     Dates: start: 20150930
  11. PERTUZUMAB [Suspect]
     Active Substance: PERTUZUMAB
     Route: 042
  12. PERTUZUMAB [Suspect]
     Active Substance: PERTUZUMAB
     Dosage: 840 MG, Q3W (CUMULATIVE DOSE: 2481.6667 MG)
     Route: 065
     Dates: start: 20151021
  13. PERTUZUMAB [Suspect]
     Active Substance: PERTUZUMAB
     Dosage: 420 MG, Q3W (CUMULATIVE DOSE: 820.83 MG)
     Route: 065
  14. PERTUZUMAB [Suspect]
     Active Substance: PERTUZUMAB
     Route: 065
  15. ARIPIPRAZOLE [Suspect]
     Active Substance: ARIPIPRAZOLE
     Indication: Schizophrenia
     Route: 048
  16. ARIPIPRAZOLE [Suspect]
     Active Substance: ARIPIPRAZOLE
     Indication: Schizophrenia
     Dosage: UNK
     Route: 048
  17. ARIPIPRAZOLE [Suspect]
     Active Substance: ARIPIPRAZOLE
     Route: 048
  18. ARIPIPRAZOLE [Suspect]
     Active Substance: ARIPIPRAZOLE
     Route: 048
  19. ARIPIPRAZOLE [Suspect]
     Active Substance: ARIPIPRAZOLE
     Route: 065
  20. CHLORPROMAZINE [Suspect]
     Active Substance: CHLORPROMAZINE
     Indication: Schizophrenia
     Route: 048
  21. CHLORPROMAZINE [Suspect]
     Active Substance: CHLORPROMAZINE
     Indication: Schizophrenia
     Route: 048
  22. CHLORPROMAZINE [Suspect]
     Active Substance: CHLORPROMAZINE
     Route: 048
  23. CHLORPROMAZINE [Suspect]
     Active Substance: CHLORPROMAZINE
     Route: 048
  24. CHLORPROMAZINE [Suspect]
     Active Substance: CHLORPROMAZINE
     Route: 048
  25. CHLORPROMAZINE [Suspect]
     Active Substance: CHLORPROMAZINE
     Route: 048
  26. CHLORPROMAZINE [Suspect]
     Active Substance: CHLORPROMAZINE
     Route: 048
  27. CHLORPROMAZINE [Suspect]
     Active Substance: CHLORPROMAZINE
     Route: 065
  28. CHLORPROMAZINE [Suspect]
     Active Substance: CHLORPROMAZINE
     Route: 065
  29. LORAZEPAM [Suspect]
     Active Substance: LORAZEPAM
     Indication: Schizophrenia
     Route: 048
  30. LORAZEPAM [Suspect]
     Active Substance: LORAZEPAM
     Indication: Schizophrenia
     Route: 065
  31. LORAZEPAM [Suspect]
     Active Substance: LORAZEPAM
     Route: 048
  32. LORAZEPAM [Suspect]
     Active Substance: LORAZEPAM
     Route: 048
  33. LORAZEPAM [Suspect]
     Active Substance: LORAZEPAM
     Route: 048
  34. LORAZEPAM [Suspect]
     Active Substance: LORAZEPAM
     Route: 048
  35. LORAZEPAM [Suspect]
     Active Substance: LORAZEPAM
     Route: 048
  36. LORAZEPAM [Suspect]
     Active Substance: LORAZEPAM
     Route: 048
  37. LORAZEPAM [Suspect]
     Active Substance: LORAZEPAM
     Route: 048
  38. HALOPERIDOL [Suspect]
     Active Substance: HALOPERIDOL
     Indication: Schizophrenia
     Route: 048
  39. HALOPERIDOL [Suspect]
     Active Substance: HALOPERIDOL
     Indication: Schizophrenia
     Dosage: 5 MG, BID
     Route: 048
  40. HALOPERIDOL [Suspect]
     Active Substance: HALOPERIDOL
     Route: 048
  41. HALOPERIDOL [Suspect]
     Active Substance: HALOPERIDOL
     Route: 048
  42. HALOPERIDOL [Suspect]
     Active Substance: HALOPERIDOL
     Route: 048
  43. HALOPERIDOL [Suspect]
     Active Substance: HALOPERIDOL
     Dosage: 10 MG, BID
     Route: 065
  44. HALOPERIDOL [Suspect]
     Active Substance: HALOPERIDOL
     Dosage: 5 MG, BID
     Route: 048
  45. HALOPERIDOL [Suspect]
     Active Substance: HALOPERIDOL
     Route: 048
  46. HALOPERIDOL [Suspect]
     Active Substance: HALOPERIDOL
     Dosage: 20 MILLIGRAM, BID (10 MILLIGRAM, BID )
     Route: 048
  47. HALOPERIDOL [Suspect]
     Active Substance: HALOPERIDOL
     Dosage: 10 MILLIGRAM, QD
     Route: 048
  48. HALOPERIDOL [Suspect]
     Active Substance: HALOPERIDOL
     Dosage: 10 MILLIGRAM, QD
     Route: 048
  49. HALOPERIDOL [Suspect]
     Active Substance: HALOPERIDOL
     Dosage: 10 MG, BID
     Route: 065
  50. HALOPERIDOL [Suspect]
     Active Substance: HALOPERIDOL
     Dosage: 10 MG, BID
     Route: 065
  51. HALOPERIDOL [Suspect]
     Active Substance: HALOPERIDOL
     Dosage: 10 MG, BID
     Route: 065
  52. HALOPERIDOL [Suspect]
     Active Substance: HALOPERIDOL
     Dosage: 10 MG, BID
     Route: 065
  53. HALOPERIDOL [Suspect]
     Active Substance: HALOPERIDOL
     Dosage: 10 MG, BID
     Route: 048
  54. HALOPERIDOL [Suspect]
     Active Substance: HALOPERIDOL
     Dosage: 5 MG, BID 5 MILLIGRAM, TWO TIMES A DAY (5 MG, BID)
     Route: 048
  55. HALOPERIDOL [Suspect]
     Active Substance: HALOPERIDOL
     Dosage: 10 MG, BID
     Route: 065
  56. HALOPERIDOL [Suspect]
     Active Substance: HALOPERIDOL
     Route: 048
  57. HALOPERIDOL [Suspect]
     Active Substance: HALOPERIDOL
     Route: 048
  58. LITHIUM [Suspect]
     Active Substance: LITHIUM
     Indication: Product used for unknown indication
     Dosage: 6 MILLIGRAM, ONCE A DAY
     Route: 048
  59. LITHIUM [Suspect]
     Active Substance: LITHIUM
     Dosage: UNK
     Route: 065
  60. LITHIUM [Suspect]
     Active Substance: LITHIUM
     Route: 048
  61. LITHIUM [Suspect]
     Active Substance: LITHIUM
     Route: 048
  62. LITHIUM [Suspect]
     Active Substance: LITHIUM
     Route: 048
  63. LITHIUM [Suspect]
     Active Substance: LITHIUM
     Dosage: 1 GRAM
     Route: 048
  64. LITHIUM [Suspect]
     Active Substance: LITHIUM
     Dosage: 6 GRAM
     Route: 065
  65. ZUCLOPENTHIXOL [Suspect]
     Active Substance: ZUCLOPENTHIXOL
     Indication: Product used for unknown indication
     Dosage: 400 MG, QW2
     Route: 065
     Dates: start: 20091018
  66. ZUCLOPENTHIXOL [Suspect]
     Active Substance: ZUCLOPENTHIXOL
     Route: 030
     Dates: start: 20040217, end: 20040601
  67. ZUCLOPENTHIXOL [Suspect]
     Active Substance: ZUCLOPENTHIXOL
     Route: 030
     Dates: start: 20091009
  68. ZUCLOPENTHIXOL [Suspect]
     Active Substance: ZUCLOPENTHIXOL
     Dosage: 400 MG, QW2
     Route: 030
     Dates: start: 20030204, end: 20040217
  69. ZUCLOPENTHIXOL [Suspect]
     Active Substance: ZUCLOPENTHIXOL
     Dosage: 400 MG, QW2, (CYCLIC, 01 JUN 2004)
     Route: 030
     Dates: end: 20041018
  70. ZUCLOPENTHIXOL [Suspect]
     Active Substance: ZUCLOPENTHIXOL
     Dosage: (01 JUN 2004)
     Route: 065
     Dates: end: 20041018
  71. ZUCLOPENTHIXOL [Suspect]
     Active Substance: ZUCLOPENTHIXOL
     Route: 065
  72. ZUCLOPENTHIXOL [Suspect]
     Active Substance: ZUCLOPENTHIXOL
     Dosage: 400 MG, QW2
     Route: 030
     Dates: start: 20040601, end: 20041018
  73. ZUCLOPENTHIXOL [Suspect]
     Active Substance: ZUCLOPENTHIXOL
     Dosage: 800 MG, QW, (04 FEB 2003)
     Route: 030
     Dates: end: 20040217
  74. ZUCLOPENTHIXOL [Suspect]
     Active Substance: ZUCLOPENTHIXOL
     Dosage: UNK
     Route: 065
  75. ZUCLOPENTHIXOL [Suspect]
     Active Substance: ZUCLOPENTHIXOL
     Dosage: 400 MG, QW2
     Route: 030
     Dates: start: 20041018, end: 20041018
  76. ZUCLOPENTHIXOL [Suspect]
     Active Substance: ZUCLOPENTHIXOL
     Dosage: 400 MG, QW2, (CYCLIC, 04 FEB 2004)
     Route: 065
     Dates: end: 20040217
  77. ZUCLOPENTHIXOL [Suspect]
     Active Substance: ZUCLOPENTHIXOL
     Dosage: 400 MG, QW2, (18 OCT 2009)
     Route: 030
  78. ZUCLOPENTHIXOL [Suspect]
     Active Substance: ZUCLOPENTHIXOL
     Dosage: 300 MG, WEEKLY/18-OCT-2009
     Route: 065
     Dates: start: 20091018
  79. ZUCLOPENTHIXOL [Suspect]
     Active Substance: ZUCLOPENTHIXOL
     Dosage: 400 MG, CYCLIC (400 MG, BIWEEKLY)
     Route: 030
     Dates: start: 20040601, end: 20041018
  80. ZUCLOPENTHIXOL [Suspect]
     Active Substance: ZUCLOPENTHIXOL
     Dosage: 400 MILLIGRAM, EVERY WEEK
     Route: 030
  81. ZUCLOPENTHIXOL [Suspect]
     Active Substance: ZUCLOPENTHIXOL
     Route: 030
     Dates: end: 20091018
  82. ZUCLOPENTHIXOL [Suspect]
     Active Substance: ZUCLOPENTHIXOL
     Dosage: 400 MG, CYCLIC (400 MG, BIWEEKLY)
     Route: 030
     Dates: start: 20030204, end: 20040217
  83. ZUCLOPENTHIXOL [Suspect]
     Active Substance: ZUCLOPENTHIXOL
     Dosage: 400 MG, OTHER (BIWEEKLY)
     Route: 030
     Dates: start: 20041018, end: 20041018
  84. ZUCLOPENTHIXOL [Suspect]
     Active Substance: ZUCLOPENTHIXOL
     Dosage: CYCLE
     Route: 030
     Dates: end: 20091018
  85. ZUCLOPENTHIXOL [Suspect]
     Active Substance: ZUCLOPENTHIXOL
     Route: 030
  86. ZUCLOPENTHIXOL [Suspect]
     Active Substance: ZUCLOPENTHIXOL
     Route: 030
     Dates: end: 20091018
  87. ZUCLOPENTHIXOL [Suspect]
     Active Substance: ZUCLOPENTHIXOL
     Route: 030
  88. ZUCLOPENTHIXOL [Suspect]
     Active Substance: ZUCLOPENTHIXOL
     Dosage: 400 MILLIGRAM, QWK
     Route: 030
     Dates: start: 20030204, end: 20040217
  89. ZUCLOPENTHIXOL [Suspect]
     Active Substance: ZUCLOPENTHIXOL
     Route: 030
     Dates: start: 20091018
  90. ZUCLOPENTHIXOL [Suspect]
     Active Substance: ZUCLOPENTHIXOL
     Dosage: 400 MILLIGRAM OTHER (BIWEEKLY)
     Route: 030
     Dates: start: 20041018, end: 20041018
  91. ZUCLOPENTHIXOL [Suspect]
     Active Substance: ZUCLOPENTHIXOL
     Route: 030
     Dates: start: 20091018
  92. ZUCLOPENTHIXOL [Suspect]
     Active Substance: ZUCLOPENTHIXOL
     Route: 030
     Dates: start: 20041018
  93. ZUCLOPENTHIXOL [Suspect]
     Active Substance: ZUCLOPENTHIXOL
     Route: 030
  94. ZUCLOPENTHIXOL [Suspect]
     Active Substance: ZUCLOPENTHIXOL
     Route: 030
     Dates: start: 20091009
  95. ZUCLOPENTHIXOL [Suspect]
     Active Substance: ZUCLOPENTHIXOL
     Route: 030
     Dates: start: 20040601, end: 20041018
  96. ZUCLOPENTHIXOL [Suspect]
     Active Substance: ZUCLOPENTHIXOL
     Route: 030
     Dates: end: 20040601
  97. RISPERDAL [Suspect]
     Active Substance: RISPERIDONE
     Indication: Schizophrenia
     Route: 065
  98. RISPERDAL [Suspect]
     Active Substance: RISPERIDONE
     Indication: Schizophrenia
     Route: 065
  99. RISPERDAL [Suspect]
     Active Substance: RISPERIDONE
     Route: 065
  100. RISPERDAL [Suspect]
     Active Substance: RISPERIDONE
     Dosage: 1 GRAM, ONCE A DAY
     Route: 065
  101. RISPERDAL [Suspect]
     Active Substance: RISPERIDONE
     Dosage: 4 MILLIGRAM, ONCE A DAY ORALLY
     Route: 048
  102. RISPERDAL [Suspect]
     Active Substance: RISPERIDONE
     Dosage: 3 MG, BID
     Route: 048
  103. RISPERDAL [Suspect]
     Active Substance: RISPERIDONE
     Route: 065
  104. RISPERDAL [Suspect]
     Active Substance: RISPERIDONE
     Dosage: 3 MG, BID
     Route: 048
  105. RISPERDAL [Suspect]
     Active Substance: RISPERIDONE
     Dosage: 2 MG, BID
     Route: 065
  106. RISPERDAL [Suspect]
     Active Substance: RISPERIDONE
     Dosage: 4 MILLIGRAM, QD (2 MG, 2X/DAY)
     Route: 065
  107. RISPERDAL [Suspect]
     Active Substance: RISPERIDONE
     Dosage: 1 MG, QD
     Route: 065
  108. RISPERDAL [Suspect]
     Active Substance: RISPERIDONE
     Route: 065
  109. RISPERDAL [Suspect]
     Active Substance: RISPERIDONE
     Dosage: 3 MILLIGRAM, TWO TIMES A DAY 3 MG, Q12H 3 MG, BID
     Route: 065
  110. RISPERDAL [Suspect]
     Active Substance: RISPERIDONE
     Dosage: 4 MILLIGRAM, ONCE A DAY (4 MG, QD) 2 MILLIGRAM, BID
     Route: 065
  111. RISPERDAL [Suspect]
     Active Substance: RISPERIDONE
     Dosage: 2 MILLIGRAM 2 MG, BID
     Route: 065
  112. RISPERDAL [Suspect]
     Active Substance: RISPERIDONE
     Route: 065
  113. RISPERDAL [Suspect]
     Active Substance: RISPERIDONE
     Route: 065
  114. RISPERDAL [Suspect]
     Active Substance: RISPERIDONE
     Route: 048
  115. RISPERDAL [Suspect]
     Active Substance: RISPERIDONE
     Route: 065
  116. RISPERDAL [Suspect]
     Active Substance: RISPERIDONE
     Route: 048
  117. RISPERDAL [Suspect]
     Active Substance: RISPERIDONE
     Route: 065
  118. RISPERDAL [Suspect]
     Active Substance: RISPERIDONE
     Route: 065
  119. RISPERIDONE [Suspect]
     Active Substance: RISPERIDONE
     Indication: Schizophrenia
     Dosage: 3 MG, BID
     Route: 048
  120. RISPERIDONE [Suspect]
     Active Substance: RISPERIDONE
     Indication: Schizophrenia
     Dosage: 2 MG, BID
     Route: 048
  121. RISPERIDONE [Suspect]
     Active Substance: RISPERIDONE
     Dosage: (3 MG BID)
     Route: 048
  122. RISPERIDONE [Suspect]
     Active Substance: RISPERIDONE
     Route: 048
  123. RISPERIDONE [Suspect]
     Active Substance: RISPERIDONE
     Route: 048
  124. RISPERIDONE [Suspect]
     Active Substance: RISPERIDONE
     Dosage: 3 MG, BID
     Route: 048
  125. RISPERIDONE [Suspect]
     Active Substance: RISPERIDONE
     Dosage: (2 MG BID)
     Route: 048
  126. RISPERIDONE [Suspect]
     Active Substance: RISPERIDONE
     Route: 048
  127. RISPERIDONE [Suspect]
     Active Substance: RISPERIDONE
     Route: 048
  128. RISPERIDONE [Suspect]
     Active Substance: RISPERIDONE
     Route: 048
  129. RISPERIDONE [Suspect]
     Active Substance: RISPERIDONE
     Route: 048
  130. RISPERIDONE [Suspect]
     Active Substance: RISPERIDONE
     Route: 048
  131. RISPERIDONE [Suspect]
     Active Substance: RISPERIDONE
     Route: 048
  132. RISPERIDONE [Suspect]
     Active Substance: RISPERIDONE
     Route: 048
  133. RISPERIDONE [Suspect]
     Active Substance: RISPERIDONE
     Route: 048
  134. CLOZAPINE [Suspect]
     Active Substance: CLOZAPINE
     Indication: Schizophrenia
     Dosage: 1 DOSAGE FORM, (AT AM)
     Route: 065
  135. CLOZAPINE [Suspect]
     Active Substance: CLOZAPINE
     Dosage: UNK
     Route: 048
     Dates: start: 20191223, end: 20191223
  136. CLOZAPINE [Suspect]
     Active Substance: CLOZAPINE
     Route: 048
  137. CLOZAPINE [Suspect]
     Active Substance: CLOZAPINE
     Dosage: (PM)
     Route: 048
  138. CLOZAPINE [Suspect]
     Active Substance: CLOZAPINE
     Dosage: 50 MG, QD(1X/DAY (MIDDAY))
     Route: 048
     Dates: start: 20190809, end: 20190823
  139. CLOZAPINE [Suspect]
     Active Substance: CLOZAPINE
     Dosage: (AM)
     Route: 048
     Dates: start: 2011
  140. CLOZAPINE [Suspect]
     Active Substance: CLOZAPINE
     Route: 048
     Dates: start: 20191209, end: 20191223
  141. CLOZAPINE [Suspect]
     Active Substance: CLOZAPINE
     Dosage: UNK
     Route: 048
  142. CLOZAPINE [Suspect]
     Active Substance: CLOZAPINE
     Dosage: 200 MILLIGRAM, ONCE A DAY, OFF LABEL USE
     Route: 048
     Dates: start: 20100823
  143. CLOZAPINE [Suspect]
     Active Substance: CLOZAPINE
     Dosage: 100 MG, QD; 100 MILLIGRAM, ONCE A DAY AM
     Route: 048
  144. CLOZAPINE [Suspect]
     Active Substance: CLOZAPINE
     Route: 048
     Dates: start: 20191207
  145. CLOZAPINE [Suspect]
     Active Substance: CLOZAPINE
     Route: 048
     Dates: start: 20100823, end: 20100823
  146. CLOZAPINE [Suspect]
     Active Substance: CLOZAPINE
     Dosage: (EACH MORNING)
     Route: 048
  147. CLOZAPINE [Suspect]
     Active Substance: CLOZAPINE
     Dosage: (PM)
     Route: 048
  148. CLOZAPINE [Suspect]
     Active Substance: CLOZAPINE
     Dosage: UNK
     Route: 048
  149. CLOZAPINE [Suspect]
     Active Substance: CLOZAPINE
     Route: 048
     Dates: start: 20191209, end: 20191223
  150. CLOZAPINE [Suspect]
     Active Substance: CLOZAPINE
     Dosage: 400 MG, QD OFF LABEL USE
     Route: 048
  151. CLOZAPINE [Suspect]
     Active Substance: CLOZAPINE
     Dosage: 400 MG, BID
     Route: 048
  152. CLOZAPINE [Suspect]
     Active Substance: CLOZAPINE
     Dosage: UNK
     Route: 065
     Dates: end: 20191223
  153. CLOZAPINE [Suspect]
     Active Substance: CLOZAPINE
     Dosage: 245 MILLIGRAM, ONCE A DAY
     Route: 048
     Dates: start: 20191209, end: 20191223
  154. CLOZAPINE [Suspect]
     Active Substance: CLOZAPINE
     Dosage: 275 MG, QD, PM
     Route: 048
  155. CLOZAPINE [Suspect]
     Active Substance: CLOZAPINE
     Dosage: UNK
     Route: 048
  156. CLOZAPINE [Suspect]
     Active Substance: CLOZAPINE
     Dosage: UNK
     Route: 048
  157. CLOZAPINE [Suspect]
     Active Substance: CLOZAPINE
     Dosage: 200 MG, BID
     Route: 048
     Dates: start: 20191209, end: 20191223
  158. CLOZAPINE [Suspect]
     Active Substance: CLOZAPINE
     Route: 065
  159. CLOZAPINE [Suspect]
     Active Substance: CLOZAPINE
     Route: 048
  160. CLOZAPINE [Suspect]
     Active Substance: CLOZAPINE
     Dosage: UNK
     Route: 048
     Dates: start: 20100823, end: 20100823
  161. CLOZAPINE [Suspect]
     Active Substance: CLOZAPINE
     Route: 065
     Dates: end: 20191223
  162. CLOZAPINE [Suspect]
     Active Substance: CLOZAPINE
     Route: 065
     Dates: start: 20200521, end: 20200521
  163. CLOZAPINE [Suspect]
     Active Substance: CLOZAPINE
     Route: 065
     Dates: start: 20201209
  164. CLOZAPINE [Suspect]
     Active Substance: CLOZAPINE
     Route: 065
     Dates: start: 20191207, end: 20191223
  165. CLOZAPINE [Suspect]
     Active Substance: CLOZAPINE
     Route: 065
     Dates: start: 20191223
  166. CLOZAPINE [Suspect]
     Active Substance: CLOZAPINE
     Route: 048
     Dates: start: 20191209, end: 20191223
  167. CLOZAPINE [Suspect]
     Active Substance: CLOZAPINE
     Route: 065
     Dates: start: 20191223
  168. CLOZAPINE [Suspect]
     Active Substance: CLOZAPINE
     Route: 048
     Dates: start: 2011
  169. CLOZAPINE [Suspect]
     Active Substance: CLOZAPINE
     Route: 048
     Dates: start: 20201207
  170. CLOZAPINE [Suspect]
     Active Substance: CLOZAPINE
     Route: 048
     Dates: start: 20201207
  171. CLOZAPINE [Suspect]
     Active Substance: CLOZAPINE
     Route: 065
     Dates: start: 20200521
  172. CLOZAPINE [Suspect]
     Active Substance: CLOZAPINE
     Route: 048
     Dates: start: 20200521
  173. CLOZAPINE [Suspect]
     Active Substance: CLOZAPINE
     Route: 048
     Dates: start: 20200521, end: 2020
  174. CLOZAPINE [Suspect]
     Active Substance: CLOZAPINE
     Route: 048
     Dates: start: 20201223, end: 20201223
  175. CLOZAPINE [Suspect]
     Active Substance: CLOZAPINE
     Route: 048
     Dates: start: 20191223, end: 20191223
  176. CLOZAPINE [Suspect]
     Active Substance: CLOZAPINE
     Dosage: 200 MILLIGRAM, TWO TIMES A DAY
     Route: 048
     Dates: start: 20191209
  177. CLOZAPINE [Suspect]
     Active Substance: CLOZAPINE
     Route: 048
     Dates: start: 20201207
  178. CLOZAPINE [Suspect]
     Active Substance: CLOZAPINE
     Dosage: 200 MILLIGRAM, TWO TIMES A DAY 200 MG, BID
     Route: 048
  179. CLOZAPINE [Suspect]
     Active Substance: CLOZAPINE
     Dosage: 50 MG, QD, MIDDAY
     Route: 048
     Dates: start: 20191209, end: 20191223
  180. CLOZAPINE [Suspect]
     Active Substance: CLOZAPINE
     Dosage: 245 MG, QD (AM)
     Route: 048
     Dates: start: 20191223, end: 20191223
  181. CLOZAPINE [Suspect]
     Active Substance: CLOZAPINE
     Route: 048
     Dates: start: 20200521, end: 2021
  182. CLOZAPINE [Suspect]
     Active Substance: CLOZAPINE
     Route: 048
     Dates: start: 20100823
  183. CLOZAPINE [Suspect]
     Active Substance: CLOZAPINE
     Dosage: 300 MG, QD, PM
     Route: 048
     Dates: start: 20100823
  184. CLOZAPINE [Suspect]
     Active Substance: CLOZAPINE
     Route: 048
     Dates: start: 20191223, end: 20191223
  185. CLOZAPINE [Suspect]
     Active Substance: CLOZAPINE
     Route: 065
  186. CLOZAPINE [Suspect]
     Active Substance: CLOZAPINE
     Route: 048
  187. CLOZAPINE [Suspect]
     Active Substance: CLOZAPINE
     Route: 048
     Dates: start: 20190823, end: 20190823
  188. CLOZAPINE [Suspect]
     Active Substance: CLOZAPINE
     Route: 048
  189. CLOZAPINE [Suspect]
     Active Substance: CLOZAPINE
     Route: 048
     Dates: start: 20191223, end: 20191223
  190. CLOZAPINE [Suspect]
     Active Substance: CLOZAPINE
     Route: 048
     Dates: start: 2011
  191. CLOZAPINE [Suspect]
     Active Substance: CLOZAPINE
     Route: 048
     Dates: start: 2011
  192. CLOZAPINE [Suspect]
     Active Substance: CLOZAPINE
     Route: 048
     Dates: start: 20200521, end: 2021
  193. CLOZAPINE [Suspect]
     Active Substance: CLOZAPINE
     Route: 048
     Dates: start: 20200207
  194. CLOZAPINE [Suspect]
     Active Substance: CLOZAPINE
     Route: 048
     Dates: start: 20100823
  195. CLOZAPINE [Suspect]
     Active Substance: CLOZAPINE
     Route: 048
  196. CLOZAPINE [Suspect]
     Active Substance: CLOZAPINE
     Route: 048
  197. CLOZAPINE [Suspect]
     Active Substance: CLOZAPINE
     Route: 048
     Dates: end: 20200521
  198. CLOZAPINE [Suspect]
     Active Substance: CLOZAPINE
     Route: 048
     Dates: start: 20200207
  199. CLOZAPINE [Suspect]
     Active Substance: CLOZAPINE
     Route: 048
     Dates: start: 20190823, end: 20190823
  200. CLOZAPINE [Suspect]
     Active Substance: CLOZAPINE
     Route: 048
     Dates: start: 2011
  201. CLOZAPINE [Suspect]
     Active Substance: CLOZAPINE
     Route: 048
     Dates: start: 20191207, end: 20191223
  202. CLOZAPINE [Suspect]
     Active Substance: CLOZAPINE
     Route: 048
     Dates: start: 20200521
  203. CLOZAPINE [Suspect]
     Active Substance: CLOZAPINE
     Route: 048
  204. CLOZAPINE [Suspect]
     Active Substance: CLOZAPINE
     Route: 048
     Dates: start: 20100823
  205. PACLITAXEL [Suspect]
     Active Substance: PACLITAXEL
     Indication: Breast cancer metastatic
     Dosage: (CUMULATIVE DOSE: 377.142)
     Route: 042
     Dates: end: 20151223
  206. PACLITAXEL [Suspect]
     Active Substance: PACLITAXEL
     Dosage: (CUMULATIVE DOSE: 428.57 MG)
     Route: 042
     Dates: start: 20151111, end: 20151222
  207. PACLITAXEL [Suspect]
     Active Substance: PACLITAXEL
     Dosage: (CUMULATIVE DOSE: 428.57 MG) 120 MG, WEEKLY (1/W)
     Route: 042
     Dates: start: 20151111
  208. PACLITAXEL [Suspect]
     Active Substance: PACLITAXEL
     Route: 065
     Dates: start: 20151111
  209. OLANZAPINE [Suspect]
     Active Substance: OLANZAPINE
     Indication: Schizophrenia
     Dosage: UNK
     Route: 048
  210. OLANZAPINE [Suspect]
     Active Substance: OLANZAPINE
     Route: 048
     Dates: start: 20080823
  211. OLANZAPINE [Suspect]
     Active Substance: OLANZAPINE
     Route: 048
  212. OLANZAPINE [Suspect]
     Active Substance: OLANZAPINE
     Route: 048
     Dates: start: 20060704
  213. OLANZAPINE [Suspect]
     Active Substance: OLANZAPINE
     Route: 048
  214. OLANZAPINE [Suspect]
     Active Substance: OLANZAPINE
     Route: 048
     Dates: start: 20040217
  215. OLANZAPINE [Suspect]
     Active Substance: OLANZAPINE
     Dosage: 10 MILLIGRAM
     Route: 065
  216. OLANZAPINE [Suspect]
     Active Substance: OLANZAPINE
     Route: 065
  217. OLANZAPINE [Suspect]
     Active Substance: OLANZAPINE
     Route: 048
  218. OLANZAPINE [Suspect]
     Active Substance: OLANZAPINE
     Route: 065
  219. OLANZAPINE [Suspect]
     Active Substance: OLANZAPINE
     Route: 065
  220. OLANZAPINE [Suspect]
     Active Substance: OLANZAPINE
     Route: 065
  221. OLANZAPINE [Suspect]
     Active Substance: OLANZAPINE
     Route: 065
  222. DOCETAXEL [Suspect]
     Active Substance: DOCETAXEL\DOCETAXEL ANHYDROUS
     Indication: Breast cancer metastatic
     Dosage: 110 (CUMULATIVE DOSE: 324.98)
     Route: 042
     Dates: start: 20150930, end: 20151021
  223. DOCETAXEL [Suspect]
     Active Substance: DOCETAXEL\DOCETAXEL ANHYDROUS
     Route: 065
     Dates: start: 20151222
  224. DOCETAXEL [Suspect]
     Active Substance: DOCETAXEL\DOCETAXEL ANHYDROUS
     Route: 065
  225. ZUCLOPENTHIXOL [Suspect]
     Active Substance: ZUCLOPENTHIXOL
     Indication: Product used for unknown indication
     Dosage: 400 MILLIGRAM, CYCLE (400 MILLIGRAM, CYCLICAL, (400 MG, CYCLIC (400 MG, BIWEEKLY))
     Route: 048
     Dates: start: 20040217, end: 20040601
  226. ZUCLOPENTHIXOL [Suspect]
     Active Substance: ZUCLOPENTHIXOL
     Dosage: 400 MILLIGRAM, CYCLICAL, (400 MG, CYCLIC (400 MG, BIWEEKLY)
     Route: 048
     Dates: start: 20040217, end: 20040601
  227. PIPERACILLIN SODIUM\TAZOBACTAM SODIUM [Suspect]
     Active Substance: PIPERACILLIN SODIUM\TAZOBACTAM SODIUM
     Indication: Febrile neutropenia
     Dosage: UNK
     Route: 065
     Dates: end: 201511
  228. XGEVA [Suspect]
     Active Substance: DENOSUMAB
     Indication: Metastases to bone
     Dosage: 120 MILLIGRAM, OTHER (EVERY 9 WEEKS)
     Route: 065
     Dates: start: 20150930
  229. XGEVA [Suspect]
     Active Substance: DENOSUMAB
     Indication: Gastrooesophageal reflux disease
     Route: 065
     Dates: start: 20150930
  230. CALCIUM\CHOLECALCIFEROL [Concomitant]
     Active Substance: CALCIUM\CHOLECALCIFEROL
     Indication: Product used for unknown indication
     Dosage: (DOSE FORM: 245)
     Route: 048
  231. CALCIUM\CHOLECALCIFEROL [Concomitant]
     Active Substance: CALCIUM\CHOLECALCIFEROL
     Dates: start: 20191018
  232. CHLORPHENIRAMINE MALEATE [Concomitant]
     Active Substance: CHLORPHENIRAMINE MALEATE
     Indication: Product used for unknown indication
     Dosage: 10 MG, QW (CUMULATIVE DOSE 28.57)
     Route: 058
     Dates: start: 20151111
  233. DENOSUMAB [Concomitant]
     Active Substance: DENOSUMAB
     Indication: Metastases to bone
     Dosage: 120 MG, EVERY 9 WEEKS, (CUMULATIVE DOSE: 118.174)
     Route: 058
     Dates: start: 20150930
  234. DENOSUMAB [Concomitant]
     Active Substance: DENOSUMAB
     Dosage: 625 MG, QID
     Route: 058
     Dates: start: 20150930
  235. DENOSUMAB [Concomitant]
     Active Substance: DENOSUMAB
     Route: 065
  236. GENTAMICIN [Concomitant]
     Active Substance: GENTAMICIN
     Indication: Febrile neutropenia
     Dosage: UNK
     Route: 042
     Dates: start: 20151121, end: 201511
  237. LEVOFLOXACIN [Concomitant]
     Active Substance: LEVOFLOXACIN
     Indication: Febrile neutropenia
     Dosage: (CUMULATIVE DOSE: 3000)
     Route: 048
     Dates: start: 20151125
  238. MIRTAZAPINE [Concomitant]
     Active Substance: MIRTAZAPINE
     Indication: Product used for unknown indication
     Dosage: 15 MG, QD (245)
     Route: 048
     Dates: start: 201510
  239. MIRTAZAPINE [Concomitant]
     Active Substance: MIRTAZAPINE
     Dosage: 30MG, BID
     Route: 065
     Dates: start: 201510
  240. MORPHINE [Concomitant]
     Active Substance: MORPHINE
     Indication: Product used for unknown indication
     Dosage: 30 MG (EVERY 0.5 DAY)
     Route: 048
     Dates: start: 201509
  241. MORPHINE [Concomitant]
     Active Substance: MORPHINE
     Dosage: 15 MG, DAILY
     Route: 048
     Dates: start: 201510
  242. MORPHINE SULFATE [Concomitant]
     Active Substance: MORPHINE SULFATE
     Indication: Product used for unknown indication
     Dosage: 10 MG (AS NECESSARY)
     Route: 065
     Dates: start: 201509
  243. ACETAMINOPHEN [Concomitant]
     Active Substance: ACETAMINOPHEN
     Indication: Pain
     Dosage: 500 MG (DOSE FORM 245)
     Route: 048
     Dates: start: 20151027
  244. ACETAMINOPHEN [Concomitant]
     Active Substance: ACETAMINOPHEN
     Route: 048
     Dates: start: 201510
  245. PREGABALIN [Concomitant]
     Active Substance: PREGABALIN
     Indication: Product used for unknown indication
     Dosage: 75 MG, EVERY 0.5 DAY
     Route: 048
     Dates: start: 201509
  246. PREGABALIN [Concomitant]
     Active Substance: PREGABALIN
     Route: 048
     Dates: start: 201509
  247. RANITIDINE [Concomitant]
     Active Substance: RANITIDINE
     Indication: Gastrooesophageal reflux disease
     Dosage: 50 MG, QW (CUMULATIVE DOSE: 142.857)
     Route: 058
     Dates: start: 20151111
  248. PIPERACILLIN SODIUM\TAZOBACTAM SODIUM [Concomitant]
     Active Substance: PIPERACILLIN SODIUM\TAZOBACTAM SODIUM
     Indication: Febrile neutropenia
     Dosage: UNK
     Dates: start: 20151121
  249. TAZOBACTAM SODIUM [Concomitant]
     Active Substance: TAZOBACTAM SODIUM
     Indication: Febrile neutropenia
     Dosage: UNK
     Dates: start: 20151121
  250. CHOLECALCIFEROL [Concomitant]
     Active Substance: CHOLECALCIFEROL
     Indication: Product used for unknown indication
     Dosage: 2 DOSAGE FORM, DAILY
     Route: 048
  251. CHOLECALCIFEROL [Concomitant]
     Active Substance: CHOLECALCIFEROL
     Dates: start: 20151121
  252. DULOXETINE [Concomitant]
     Active Substance: DULOXETINE
     Indication: Product used for unknown indication
  253. AMOXICILLIN\CLAVULANATE POTASSIUM [Concomitant]
     Active Substance: AMOXICILLIN\CLAVULANATE POTASSIUM
     Indication: Febrile neutropenia
     Dosage: 625 MG (EVERY 0.33 DAYS, CUMULATIVE DOSE: 16875)
     Route: 048
     Dates: start: 20151122, end: 20151125

REACTIONS (28)
  - Psychotic disorder [Fatal]
  - Platelet count decreased [Fatal]
  - Affective disorder [Fatal]
  - Alopecia [Fatal]
  - Nausea [Fatal]
  - Mucosal inflammation [Fatal]
  - Fatigue [Fatal]
  - Neuropathy peripheral [Fatal]
  - Diarrhoea [Fatal]
  - Cellulitis [Fatal]
  - Dyspepsia [Fatal]
  - Rhinalgia [Fatal]
  - Leukopenia [Fatal]
  - Disease progression [Fatal]
  - Lymphocyte count decreased [Fatal]
  - Lymphocyte count abnormal [Fatal]
  - Hallucination, auditory [Fatal]
  - Delusion of grandeur [Fatal]
  - Neutropenia [Fatal]
  - Neutrophil count increased [Fatal]
  - COVID-19 [Fatal]
  - SARS-CoV-2 test positive [Fatal]
  - Seizure [Fatal]
  - Incorrect dose administered [Fatal]
  - Off label use [Fatal]
  - Extrapyramidal disorder [Fatal]
  - Schizophrenia [Fatal]
  - Overdose [Fatal]

NARRATIVE: CASE EVENT DATE: 20151101
